FAERS Safety Report 4277182-8 (Version None)
Quarter: 2004Q1

REPORT INFORMATION
  Report Type: 
  Country: None (occurrence: None)
  Receive Date: 20040120
  Receipt Date: 20040120
  Transmission Date: 20041129
  Serious: Yes (Death)
  Sender: FDA-Public Use
  Company Number: None

PATIENT
  Age: 57 Year
  Sex: Male

DRUGS (2)
  1. DAUNORUBICIN HCL [Suspect]
  2. CYTARABINE [Suspect]

REACTIONS (2)
  - PNEUMONIA [None]
  - SEPSIS [None]
